FAERS Safety Report 16894052 (Version 1)
Quarter: 2019Q4

REPORT INFORMATION
  Report Type: Spontaneous
  Country: US (occurrence: US)
  Receive Date: 20191008
  Receipt Date: 20191008
  Transmission Date: 20200122
  Serious: Yes (Hospitalization, Other)
  Sender: FDA-Public Use
  Company Number: US-SA-2019SA271091

PATIENT
  Age: 72 Year
  Sex: Male

DRUGS (1)
  1. BCG FOR IMMUNOTHERAPY [Suspect]
     Active Substance: BACILLUS CALMETTE-GUERIN ANTIGEN, UNSPECIFIED SUBSTRAIN
     Indication: BLADDER CANCER
     Dosage: UNK
     Dates: start: 2017

REACTIONS (8)
  - Tenderness [Recovered/Resolved]
  - Peripheral artery aneurysm [Recovered/Resolved]
  - Pain in extremity [Recovered/Resolved]
  - Infective aneurysm [Recovered/Resolved]
  - Mass [Recovered/Resolved]
  - Muscular weakness [Recovered/Resolved]
  - Injury [Recovered/Resolved]
  - Paraesthesia [Recovered/Resolved]
